FAERS Safety Report 9677970 (Version 1)
Quarter: 2013Q4

REPORT INFORMATION
  Report Type: Spontaneous
  Country: US (occurrence: US)
  Receive Date: 20131108
  Receipt Date: 20131108
  Transmission Date: 20140711
  Serious: Yes (Hospitalization)
  Sender: FDA-Public Use
  Company Number: US-BAYER-2013-135149

PATIENT
  Age: 40 Year
  Sex: Female

DRUGS (2)
  1. YASMIN [Suspect]
     Dosage: UNK
  2. LEVAQUIN [Concomitant]
     Indication: URINARY TRACT INFECTION

REACTIONS (2)
  - Deep vein thrombosis [None]
  - Pulmonary embolism [None]
